FAERS Safety Report 5014302-1 (Version None)
Quarter: 2006Q2

REPORT INFORMATION
  Report Type: 
  Country: None (occurrence: None)
  Receive Date: 20060414
  Receipt Date: 20051216
  Transmission Date: 20061013
  Serious: No
  Sender: FDA-Public Use
  Company Number: 2005SP003984

PATIENT
  Age: 66 Year
  Sex: Male

DRUGS (6)
  1. LUNESTA [Suspect]
     Indication: INITIAL INSOMNIA
     Dosage: 2 MG;HS;ORAL
     Route: 048
     Dates: start: 20051001
  2. EYE DROPS [Concomitant]
  3. AMLODIPINE [Concomitant]
  4. CRESTOR [Concomitant]
  5. MULTIVITAMIN [Concomitant]
  6. LORAZEPAM [Concomitant]

REACTIONS (1)
  - EYE PAIN [None]
